FAERS Safety Report 10718449 (Version 1)
Quarter: 2015Q1

REPORT INFORMATION
  Report Type: Spontaneous
  Country: NO (occurrence: NO)
  Receive Date: 20150119
  Receipt Date: 20150119
  Transmission Date: 20150721
  Serious: Yes (Hospitalization, Other)
  Sender: FDA-Public Use
  Company Number: NO-ROCHE-1497533

PATIENT
  Age: 47 Year
  Sex: Male

DRUGS (4)
  1. XELODA [Concomitant]
     Active Substance: CAPECITABINE
     Route: 065
  2. AVASTIN [Suspect]
     Active Substance: BEVACIZUMAB
     Indication: METASTASES TO LIVER
  3. AVASTIN [Suspect]
     Active Substance: BEVACIZUMAB
     Indication: COLORECTAL CANCER METASTATIC
     Dosage: GOT 2 L, 5 CYCLES OF AVASTIN
     Route: 065
     Dates: start: 2014
  4. AVASTIN [Suspect]
     Active Substance: BEVACIZUMAB
     Indication: COLORECTAL CANCER

REACTIONS (4)
  - Spinal cord infarction [Not Recovered/Not Resolved]
  - Back pain [Unknown]
  - Intervertebral discitis [Unknown]
  - Oedema [Unknown]

NARRATIVE: CASE EVENT DATE: 201411
